FAERS Safety Report 18853025 (Version 1)
Quarter: 2021Q1

REPORT INFORMATION
  Report Type: Spontaneous
  Country: US (occurrence: US)
  Receive Date: 20210205
  Receipt Date: 20210205
  Transmission Date: 20210420
  Serious: Yes (Other)
  Sender: FDA-Public Use
  Company Number: US-SUN PHARMACEUTICAL INDUSTRIES LTD-2021R1-279098

PATIENT
  Age: 13 Year
  Sex: Male

DRUGS (7)
  1. MOMETASONE FUROATE/FORMOTEROL FUMARATE DIHYDRATE [Concomitant]
     Indication: CHRONIC RHINOSINUSITIS WITH NASAL POLYPS
     Dosage: 200MCG/5 MCG (2 PUFFS), BID
     Route: 065
  2. BUDESONIDE. [Suspect]
     Active Substance: BUDESONIDE
     Indication: CHRONIC RHINOSINUSITIS WITH NASAL POLYPS
     Dosage: UNK UNK, BID
     Route: 065
  3. MEPOLIZUMAB [Concomitant]
     Active Substance: MEPOLIZUMAB
     Indication: CHRONIC RHINOSINUSITIS WITH NASAL POLYPS
     Dosage: 100 MILLIGRAM, MONTHLY
     Route: 065
  4. RITUXIMAB. [Concomitant]
     Active Substance: RITUXIMAB
     Indication: EOSINOPHILIC GRANULOMATOSIS WITH POLYANGIITIS
     Dosage: UNK
     Route: 065
  5. PREDNISONE. [Suspect]
     Active Substance: PREDNISONE
     Dosage: 15 MILLIGRAM
     Route: 065
  6. MEPOLIZUMAB [Concomitant]
     Active Substance: MEPOLIZUMAB
     Dosage: 300 MILLIGRAM, MONTHLY
     Route: 065
  7. PREDNISONE. [Suspect]
     Active Substance: PREDNISONE
     Indication: CHRONIC RHINOSINUSITIS WITH NASAL POLYPS
     Dosage: 2 MILLIGRAM/KILOGRAM, DAILY
     Route: 065

REACTIONS (3)
  - Osteoporosis [Unknown]
  - Disease progression [Unknown]
  - Adrenal insufficiency [Unknown]
